FAERS Safety Report 5639010-5 (Version None)
Quarter: 2008Q1

REPORT INFORMATION
  Report Type: 
  Country: None (occurrence: None)
  Receive Date: 20080131
  Receipt Date: 20071129
  Transmission Date: 20080703
  Serious: No
  Sender: FDA-Public Use
  Company Number: 163-21880-07111660

PATIENT
  Age: 66 Year
  Sex: Male
  Weight: 63.5036 kg

DRUGS (4)
  1. REVLIMID [Suspect]
     Indication: MULTIPLE MYELOMA
     Dosage: 25 MG, 1 IN 1 D, ORAL
     Route: 048
     Dates: start: 20071001
  2. OXYCONTIN (OXYCONTIN HYDROCHLORIDE) [Concomitant]
  3. ACYCLOVIR [Concomitant]
  4. . [Concomitant]

REACTIONS (1)
  - FATIGUE [None]
